FAERS Safety Report 12393539 (Version 3)
Quarter: 2016Q3

REPORT INFORMATION
  Report Type: Spontaneous
  Country: US (occurrence: US)
  Receive Date: 20160523
  Receipt Date: 20160822
  Transmission Date: 20161109
  Serious: Yes (Other)
  Sender: FDA-Public Use
  Company Number: US-ELI_LILLY_AND_COMPANY-US201604009572

PATIENT
  Age: 56 Year
  Sex: Female
  Weight: 113.4 kg

DRUGS (3)
  1. LANTUS [Concomitant]
     Active Substance: INSULIN GLARGINE
     Dosage: UNK, UNKNOWN
     Route: 065
  2. TRULICITY [Suspect]
     Active Substance: DULAGLUTIDE
     Indication: TYPE 2 DIABETES MELLITUS
     Dosage: 1.5 MG, WEEKLY (1/W)
     Route: 065
     Dates: start: 201511
  3. HUMALOG [Interacting]
     Active Substance: INSULIN LISPRO
     Indication: TYPE 2 DIABETES MELLITUS
     Dosage: 10 IU, PRN
     Route: 065
     Dates: start: 201602

REACTIONS (12)
  - Thyroid neoplasm [Not Recovered/Not Resolved]
  - Dysgeusia [Unknown]
  - Rhinorrhoea [Unknown]
  - Insomnia [Unknown]
  - Nasal inflammation [Unknown]
  - Anxiety [Unknown]
  - Parosmia [Unknown]
  - Glycosylated haemoglobin decreased [Unknown]
  - Drug interaction [Unknown]
  - Blood pressure increased [Unknown]
  - Eye irritation [Unknown]
  - Abdominal mass [Recovered/Resolved]

NARRATIVE: CASE EVENT DATE: 201602
